FAERS Safety Report 4880892-2 (Version None)
Quarter: 2005Q4

REPORT INFORMATION
  Report Type: 
  Country: None (occurrence: None)
  Receive Date: 20051223
  Receipt Date: 20051007
  Transmission Date: 20060501
  Serious: No
  Sender: FDA-Public Use
  Company Number: 05P-163-0313208-00

PATIENT
  Age: 56 Year
  Sex: Female
  Weight: 62.5964 kg

DRUGS (7)
  1. HUMIRA [Suspect]
     Indication: RHEUMATOID ARTHRITIS
     Dosage: 40 MG, 1 IN 2 WK, SUBCUTANEOUS
     Route: 058
     Dates: start: 20050801
  2. LEFLUNOMIDE [Suspect]
     Indication: RHEUMATOID ARTHRITIS
     Dosage: 20 MG, EVERY OTHER DAY, PER ORAL
     Route: 048
     Dates: start: 20000101
  3. PREDNISONE [Concomitant]
  4. PANTOPRAZOLE [Concomitant]
  5. PROPACET 100 [Concomitant]
  6. ATENOLOL [Concomitant]
  7. AMITRIPTYLINE HCL [Concomitant]

REACTIONS (4)
  - INJECTION SITE ERYTHEMA [None]
  - PRODUCTIVE COUGH [None]
  - RASH [None]
  - SINUSITIS [None]
